FAERS Safety Report 24151992 (Version 1)
Quarter: 2024Q3

REPORT INFORMATION
  Report Type: Spontaneous
  Country: US (occurrence: US)
  Receive Date: 20240730
  Receipt Date: 20240730
  Transmission Date: 20241016
  Serious: No
  Sender: SAREPTA THERAPEUTICS
  Company Number: US-SAREPTA THERAPEUTICS INC.-SRP2024-004847

PATIENT
  Sex: Male
  Weight: 59.6 kg

DRUGS (1)
  1. AMONDYS 45 [Suspect]
     Active Substance: CASIMERSEN
     Indication: Product used for unknown indication
     Dosage: 1750 MILLIGRAM

REACTIONS (3)
  - Catheter site swelling [Unknown]
  - Infusion site extravasation [Unknown]
  - Device dislocation [Unknown]
